FAERS Safety Report 10260197 (Version 3)
Quarter: 2014Q3

REPORT INFORMATION
  Report Type: Spontaneous
  Country: US (occurrence: US)
  Receive Date: 20140625
  Receipt Date: 20140731
  Transmission Date: 20150326
  Serious: No
  Sender: FDA-Public Use
  Company Number: US-009507513-1406USA008637

PATIENT
  Sex: Female
  Weight: 68.93 kg

DRUGS (2)
  1. NEXPLANON [Suspect]
     Active Substance: ETONOGESTREL
     Dosage: A NEW ROD WAS INSERTED,TOTAL DAILY DOSE REPORTED AS:68MG
     Route: 059
     Dates: start: 20140613
  2. NEXPLANON [Suspect]
     Active Substance: ETONOGESTREL
     Indication: CONTRACEPTION
     Dosage: 1 ROD/ 3 YEARS, TOTAL DAILY DOSE REPORTED AS:68MG
     Route: 058
     Dates: start: 201106, end: 20140613

REACTIONS (2)
  - Device breakage [Recovered/Resolved]
  - No adverse event [Unknown]
